FAERS Safety Report 8605585-7 (Version None)
Quarter: 2012Q3

REPORT INFORMATION
  Report Type: 
  Country: None (occurrence: None)
  Receive Date: 20120807
  Receipt Date: 20120723
  Transmission Date: 20120928
  Serious: Yes (Life-Threatening, Hospitalization, Other)
  Sender: FDA-Public Use
  Company Number: DSJ-2012-12302

PATIENT
  Age: 85 Year
  Sex: Female
  Weight: 36.5 kg

DRUGS (15)
  1. ALFAROL (ALFACALCIDOL) (ALFACALCIDOL) [Concomitant]
  2. GANATON (ITOPRIDE HYDROCHLORIDE) (ITOPRIDE HYDROCHLORIDE) [Concomitant]
  3. FOLIC ACID [Concomitant]
  4. MOBIC [Concomitant]
  5. SELBEX (TEPRENONE) (TEPRENONE) [Concomitant]
  6. OLMETEC (OLMESARTAN MEDOXOMIL) (TABLET) (OLMESTAN  MEDOXOMIL) [Suspect]
     Indication: HYPERTENSION
     Dosage: 20 MG (20 MG, 1 IN 1 D), PER ORAL
     Route: 048
     Dates: end: 20120424
  7. PARIET (RABEPRAZOLE SODIUM) (RABEPRAZOLE SODIUM) [Concomitant]
  8. ACTONEL (RISEDRONATE SODIUM) (RISEDRONATE SODIUM) [Concomitant]
  9. DIFLUCAN [Suspect]
     Indication: PNEUMONIA CRYPTOCOCCAL
     Dosage: 400 MG (200 MG, 2 IN 1 D), PER ORAL, 200 MG, PER ORAL
     Route: 048
     Dates: start: 20120608
  10. DIFLUCAN [Suspect]
     Indication: PNEUMONIA CRYPTOCOCCAL
     Dosage: 400 MG (200 MG, 2 IN 1 D), PER ORAL, 200 MG, PER ORAL
     Route: 048
     Dates: start: 20120403, end: 20120529
  11. DIFLUCAN [Suspect]
     Indication: PNEUMONIA CRYPTOCOCCAL
     Dosage: 400 MG (200 MG, 2 IN 1 D), PER ORAL, 200 MG, PER ORAL
     Route: 048
     Dates: start: 20120606, end: 20120807
  12. LAC B (LACTOBACILLUS BIFIDUS LYOPHILIZED) (LACTOBACILLUS BIFIDUS, LYOP [Concomitant]
  13. RHEUMATREX [Concomitant]
  14. PROGRAF (TACROLIMUS) (TACROLIMUS) [Concomitant]
  15. DEPAS (ETIZOLAM) (ETIZOLAM) [Concomitant]

REACTIONS (3)
  - RENAL DISORDER [None]
  - HYPERKALAEMIA [None]
  - BLOOD PRESSURE DECREASED [None]
